FAERS Safety Report 9631357 (Version 2)
Quarter: 2013Q4

REPORT INFORMATION
  Report Type: Spontaneous
  Country: GB (occurrence: None)
  Receive Date: 20131015
  Receipt Date: 20131017
  Transmission Date: 20140711
  Serious: Yes (Hospitalization)
  Sender: FDA-Public Use
  Company Number: AUR-APL-2013-08522

PATIENT
  Age: 45 Year
  Sex: Male

DRUGS (4)
  1. AMOXICILLIN+CLAVULANIC ACID [Suspect]
     Indication: PRODUCT USED FOR UNKNOWN INDICATION
  2. CIPROFLOXACIN (CIPROFLOXACIN) [Suspect]
     Indication: PRODUCT USED FOR UNKNOWN INDICATION
  3. LANSOPRAZOLE (LANSOPRAZOLE) [Suspect]
     Indication: PRODUCT USED FOR UNKNOWN INDICATION
     Dosage: (30 MG, 1 IN 1 D)
  4. FERROUS SULFATE (FERROUS SULFATE) [Suspect]
     Indication: PRODUCT USED FOR UNKNOWN INDICATION
     Dosage: 600 MG (200 MG, 3 IN 1 D)

REACTIONS (11)
  - Hypozincaemia [None]
  - Malnutrition [None]
  - Blood copper increased [None]
  - Blood selenium decreased [None]
  - Therapeutic response decreased [None]
  - Fall [None]
  - Asthenia [None]
  - Poisoning [None]
  - Erythema [None]
  - Alopecia [None]
  - Impaired healing [None]
